FAERS Safety Report 16329655 (Version 1)
Quarter: 2019Q2

REPORT INFORMATION
  Report Type: Spontaneous
  Country: US (occurrence: US)
  Receive Date: 20190520
  Receipt Date: 20190520
  Transmission Date: 20190711
  Serious: No
  Sender: FDA-Public Use
  Company Number: US-TEVA-2018-US-918909

PATIENT
  Age: 31 Year
  Sex: Female

DRUGS (5)
  1. METOPROLOL-SUCCINATE [Suspect]
     Active Substance: METOPROLOL SUCCINATE
     Indication: VENTRICULAR EXTRASYSTOLES
     Route: 065
  2. METOPROLOL-SUCCINATE [Suspect]
     Active Substance: METOPROLOL SUCCINATE
     Indication: VENTRICULAR EXTRASYSTOLES
     Route: 065
  3. SOTALOL. [Suspect]
     Active Substance: SOTALOL
     Indication: VENTRICULAR EXTRASYSTOLES
     Route: 065
  4. SOTALOL. [Suspect]
     Active Substance: SOTALOL
     Route: 065
  5. METOPROLOL-SUCCINATE [Suspect]
     Active Substance: METOPROLOL SUCCINATE
     Indication: VENTRICULAR EXTRASYSTOLES
     Route: 065

REACTIONS (1)
  - Maternal exposure during pregnancy [Recovered/Resolved]
